FAERS Safety Report 9104214 (Version 2)
Quarter: 2013Q1

REPORT INFORMATION
  Report Type: Spontaneous
  Country: ES (occurrence: ES)
  Receive Date: 20130219
  Receipt Date: 20130308
  Transmission Date: 20140127
  Serious: No
  Sender: FDA-Public Use
  Company Number: ES-PFIZER INC-2013057760

PATIENT
  Age: 42 Year
  Sex: Male
  Weight: 97.5 kg

DRUGS (7)
  1. SIROLIMUS [Suspect]
     Indication: RENAL TRANSPLANT
     Dosage: 1.5 UNK, UNK
     Route: 048
     Dates: start: 20121119
  2. PREDNISONE [Concomitant]
     Dosage: UNK
     Route: 048
     Dates: start: 20120728
  3. TACROLIMUS [Concomitant]
     Dosage: UNK
     Route: 048
     Dates: start: 20120728
  4. MANIDIPINE [Concomitant]
     Dosage: UNK
     Route: 048
     Dates: start: 20121004
  5. DOXAZOSIN [Concomitant]
     Dosage: UNK
     Route: 048
     Dates: start: 20121004
  6. CARVEDILOL [Concomitant]
     Dosage: UNK
     Route: 048
     Dates: start: 20120911
  7. ROCALTROL [Concomitant]
     Dosage: UNK
     Route: 048
     Dates: start: 20121004

REACTIONS (2)
  - Epistaxis [Not Recovered/Not Resolved]
  - Increased tendency to bruise [Not Recovered/Not Resolved]
